FAERS Safety Report 21880897 (Version 2)
Quarter: 2023Q2

REPORT INFORMATION
  Report Type: Spontaneous
  Country: AU (occurrence: AU)
  Receive Date: 20230118
  Receipt Date: 20230502
  Transmission Date: 20230722
  Serious: Yes (Hospitalization, Other)
  Sender: FDA-Public Use
  Company Number: AU-BAUSCHBL-2023BNL000299

PATIENT
  Age: 82 Year
  Sex: Female

DRUGS (13)
  1. GENTAMICIN [Suspect]
     Active Substance: GENTAMICIN
     Indication: Product used for unknown indication
     Route: 065
     Dates: start: 20221104, end: 20221110
  2. PENICILLIN G SODIUM [Suspect]
     Active Substance: PENICILLIN G SODIUM
     Indication: Streptococcal endocarditis
     Route: 065
     Dates: start: 20221104
  3. PENICILLIN G SODIUM [Suspect]
     Active Substance: PENICILLIN G SODIUM
     Indication: Product used for unknown indication
     Route: 042
     Dates: start: 202211, end: 202211
  4. PENICILLIN G SODIUM [Suspect]
     Active Substance: PENICILLIN G SODIUM
     Route: 042
     Dates: start: 20221118
  5. PENICILLIN G SODIUM [Suspect]
     Active Substance: PENICILLIN G SODIUM
     Route: 042
     Dates: start: 20221122, end: 20221122
  6. AMPICILLIN SODIUM [Suspect]
     Active Substance: AMPICILLIN SODIUM
     Indication: Product used for unknown indication
     Route: 065
     Dates: start: 20221102, end: 20221103
  7. CEFTRIAXONE [Suspect]
     Active Substance: CEFTRIAXONE
     Indication: Product used for unknown indication
     Route: 065
     Dates: start: 20221103
  8. SODIUM CITRATE [Suspect]
     Active Substance: SODIUM CITRATE
     Indication: Product used for unknown indication
     Route: 042
     Dates: start: 202211, end: 202211
  9. SODIUM CITRATE [Suspect]
     Active Substance: SODIUM CITRATE
     Route: 042
     Dates: start: 20221118
  10. SODIUM CITRATE [Suspect]
     Active Substance: SODIUM CITRATE
     Route: 042
     Dates: start: 20221122, end: 20221122
  11. SODIUM CHLORIDE [Suspect]
     Active Substance: SODIUM CHLORIDE
     Indication: Product used for unknown indication
     Route: 042
     Dates: start: 202211, end: 202211
  12. SODIUM CHLORIDE [Suspect]
     Active Substance: SODIUM CHLORIDE
     Route: 042
     Dates: start: 20221118
  13. SODIUM CHLORIDE [Suspect]
     Active Substance: SODIUM CHLORIDE
     Route: 042
     Dates: start: 20221122, end: 20221122

REACTIONS (4)
  - Acute kidney injury [Recovering/Resolving]
  - Disease progression [Recovering/Resolving]
  - Pyrexia [Recovered/Resolved]
  - Blood creatinine increased [Recovering/Resolving]

NARRATIVE: CASE EVENT DATE: 20221101
